FAERS Safety Report 4677703-7 (Version None)
Quarter: 2005Q2

REPORT INFORMATION
  Report Type: 
  Country: None (occurrence: None)
  Receive Date: 20050531
  Receipt Date: 20050223
  Transmission Date: 20051028
  Serious: Yes (Other)
  Sender: FDA-Public Use
  Company Number: PHBS2005BE02821

PATIENT
  Age: 55 Year
  Sex: Female

DRUGS (5)
  1. THALIDOMIDE [Concomitant]
  2. MAGNESIUM [Concomitant]
  3. TENORMIN [Concomitant]
  4. ZOMETA [Suspect]
     Indication: LIGHT CHAIN ANALYSIS INCREASED
     Dosage: UNK, UNK
     Route: 065
     Dates: end: 20050201
  5. AREDIA [Suspect]
     Indication: LIGHT CHAIN ANALYSIS INCREASED
     Dosage: UNK, UNK
     Route: 065

REACTIONS (7)
  - ASEPTIC NECROSIS BONE [None]
  - BONE INFECTION [None]
  - BONE LESION [None]
  - JAW DISORDER [None]
  - OSTEONECROSIS [None]
  - PAIN IN JAW [None]
  - WOUND DEBRIDEMENT [None]
